FAERS Safety Report 9787917 (Version 1)
Quarter: 2013Q4

REPORT INFORMATION
  Report Type: Spontaneous
  Country: US (occurrence: None)
  Receive Date: 20131227
  Receipt Date: 20131227
  Transmission Date: 20140711
  Serious: Yes (Life-Threatening, Hospitalization, Disabling)
  Sender: FDA-Public Use
  Company Number: None

PATIENT
  Age: 47 Year
  Sex: Female
  Weight: 49.9 kg

DRUGS (2)
  1. LEVAQUIN [Suspect]
     Indication: SINUSITIS
     Dosage: TAKEN  BY MOUTH
  2. AVELOX [Suspect]
     Indication: SINUSITIS
     Dosage: TAKEN BY MOUTH

REACTIONS (6)
  - Vasculitis [None]
  - Impaired work ability [None]
  - Insomnia [None]
  - Neuropathy peripheral [None]
  - Chronic fatigue syndrome [None]
  - Fibromyalgia [None]
